FAERS Safety Report 20154638 (Version 2)
Quarter: 2022Q1

REPORT INFORMATION
  Report Type: Spontaneous
  Country: CN (occurrence: CN)
  Receive Date: 20211207
  Receipt Date: 20220311
  Transmission Date: 20220423
  Serious: Yes (Hospitalization, Other)
  Sender: FDA-Public Use
  Company Number: CN-BRISTOL-MYERS SQUIBB COMPANY-BMS-2021-129611

PATIENT
  Age: 66 Year
  Sex: Female
  Weight: 71 kg

DRUGS (16)
  1. ORENCIA [Suspect]
     Active Substance: ABATACEPT
     Indication: Rheumatoid arthritis
     Dosage: 125 MILLIGRAM(0.95 ML)/VIAL , QWK
     Route: 058
     Dates: start: 20200911, end: 202101
  2. ORENCIA [Suspect]
     Active Substance: ABATACEPT
     Indication: Rheumatoid arthritis
     Dosage: 125 MILLIGRAM(0.95 ML)/VIAL , QWK
     Route: 058
     Dates: start: 20200911, end: 202101
  3. ORENCIA [Suspect]
     Active Substance: ABATACEPT
     Indication: Sjogren^s syndrome
     Dosage: 125 MILLIGRAM(0.95 ML)/VIAL , QWK
     Route: 058
     Dates: start: 202101, end: 202107
  4. ORENCIA [Suspect]
     Active Substance: ABATACEPT
     Indication: Sjogren^s syndrome
     Dosage: 125 MILLIGRAM(0.95 ML)/VIAL , QWK
     Route: 058
     Dates: start: 202101, end: 202107
  5. ORENCIA [Suspect]
     Active Substance: ABATACEPT
     Dosage: 125 MILLIGRAM ONCE A VIAL, ONCE A DAY FOR 10 DAYS
     Route: 058
     Dates: start: 202107, end: 20210831
  6. ORENCIA [Suspect]
     Active Substance: ABATACEPT
     Dosage: 125 MILLIGRAM ONCE A VIAL, ONCE A DAY FOR 10 DAYS
     Route: 058
     Dates: start: 202107, end: 20210831
  7. ORENCIA [Suspect]
     Active Substance: ABATACEPT
     Dosage: 125 MILLIGRAM(0.95 ML)/VIAL , QWK
     Route: 058
     Dates: start: 202107, end: 20210831
  8. ORENCIA [Suspect]
     Active Substance: ABATACEPT
     Dosage: 125 MILLIGRAM(0.95 ML)/VIAL , QWK
     Route: 058
     Dates: start: 202107, end: 20210831
  9. LEFLUNOMIDE [Concomitant]
     Active Substance: LEFLUNOMIDE
     Indication: Rheumatoid arthritis
     Dosage: 2 TABLET/TIME, QD
     Route: 048
     Dates: start: 20200911, end: 202101
  10. LEFLUNOMIDE [Concomitant]
     Active Substance: LEFLUNOMIDE
     Indication: Sjogren^s syndrome
     Dosage: 1 TABLET QD
     Route: 048
     Dates: start: 202101
  11. LEFLUNOMIDE [Concomitant]
     Active Substance: LEFLUNOMIDE
     Dosage: 2 TABLETS/TIME, QD
     Route: 065
     Dates: start: 202101
  12. METHOTREXATE [Concomitant]
     Active Substance: METHOTREXATE
     Indication: Product used for unknown indication
     Dosage: 2 TABLETS ONCE WEEKLY
     Route: 048
     Dates: start: 20200911
  13. METHOTREXATE [Concomitant]
     Active Substance: METHOTREXATE
     Indication: Sjogren^s syndrome
  14. FOLIC ACID [Concomitant]
     Active Substance: FOLIC ACID
     Indication: Product used for unknown indication
     Dosage: 1 TABLET ONCE WEEKLY
     Route: 065
     Dates: start: 202107
  15. FOLATE SODIUM [Concomitant]
     Active Substance: FOLATE SODIUM
     Indication: Sjogren^s syndrome
     Dosage: 2 TABLETS ONCE WEEKLY
     Route: 048
     Dates: start: 20200911
  16. FOLATE SODIUM [Concomitant]
     Active Substance: FOLATE SODIUM
     Indication: Rheumatoid arthritis

REACTIONS (5)
  - Leukopenia [Not Recovered/Not Resolved]
  - Tuberculosis [Not Recovered/Not Resolved]
  - Arthralgia [Not Recovered/Not Resolved]
  - Disease progression [Not Recovered/Not Resolved]
  - Off label use [Unknown]

NARRATIVE: CASE EVENT DATE: 20210901
